FAERS Safety Report 12266026 (Version 1)
Quarter: 2016Q2

REPORT INFORMATION
  Report Type: Spontaneous
  Country: US (occurrence: US)
  Receive Date: 20160413
  Receipt Date: 20160413
  Transmission Date: 20160815
  Serious: No
  Sender: FDA-Public Use
  Company Number: US-GREER LABORATORIES, INC.-1050543

PATIENT
  Age: 14 Year
  Sex: Male

DRUGS (15)
  1. POLLENS - WEEDS, DOCK/SORREL MIX [Suspect]
     Active Substance: RUMEX ACETOSELLA POLLEN\RUMEX CRISPUS POLLEN
     Route: 058
  2. POLLENS - GRASSES, BAHIA GRASS PASPALUM NOTATUM [Suspect]
     Active Substance: PASPALUM NOTATUM POLLEN
     Route: 058
  3. POLLENS - WEEDS AND GARDEN PLANTS, RAGWEED, MIXED AMBROSIA [Suspect]
     Active Substance: AMBROSIA ARTEMISIIFOLIA POLLEN\AMBROSIA TRIFIDA POLLEN
     Route: 058
  4. POLLENS - GRASSES, JOHNSON GRASS SORGHUM HALEPENSE [Suspect]
     Active Substance: SORGHUM HALEPENSE POLLEN
     Route: 058
  5. POLLENS - TREES, TREE MIX 5 [Suspect]
     Active Substance: ACER NEGUNDO POLLEN\ACER RUBRUM POLLEN\ACER SACCHARUM POLLEN\CARYA ILLINOINENSIS POLLEN\PLATANUS OCCIDENTALIS POLLEN\QUERCUS ALBA POLLEN\QUERCUS RUBRA POLLEN\QUERCUS VIRGINIANA POLLEN\SALIX NIGRA POLLEN
     Route: 058
  6. POLLENS - WEEDS AND GARDEN PLANTS, PIGWEED, ROUGH REDROOT AMARANTHUS RETROFLEXUS [Suspect]
     Active Substance: AMARANTHUS RETROFLEXUS POLLEN
     Route: 058
  7. POLLENS - WEEDS AND GARDEN PLANTS, RUSSIAN THISTLE SALSOLA KALI [Suspect]
     Active Substance: SALSOLA KALI POLLEN
     Route: 058
  8. POLLENS - WEEDS AND GARDEN PLANTS, PLANTAIN, ENGLISH PLANTAGO LANCEOLATA [Suspect]
     Active Substance: PLANTAGO LANCEOLATA POLLEN
     Route: 058
  9. POLLENS - TREES, TREE MIX 6 [Suspect]
     Active Substance: BETULA NIGRA POLLEN\BETULA PAPYRIFERA POLLEN\BETULA PENDULA POLLEN\FAGUS GRANDIFOLIA POLLEN\FRAXINUS AMERICANA POLLEN\JUGLANS NIGRA POLLEN\POPULUS DELTOIDES POLLEN\ULMUS AMERICANA POLLEN
     Route: 058
  10. STANDARDIZED GRASS POLLEN, GRASS MIX 7 [Suspect]
     Active Substance: AGROSTIS GIGANTEA POLLEN\ANTHOXANTHUM ODORATUM POLLEN\DACTYLIS GLOMERATA POLLEN\FESTUCA PRATENSIS POLLEN\LOLIUM PERENNE POLLEN\PHLEUM PRATENSE POLLEN\POA PRATENSIS POLLEN
     Route: 058
  11. STANDARDIZED CAT PELT [Suspect]
     Active Substance: FELIS CATUS DANDER
     Route: 058
  12. STANDARDIZED GRASS POLLEN, GRASS MIX 7 [Suspect]
     Active Substance: AGROSTIS GIGANTEA POLLEN\ANTHOXANTHUM ODORATUM POLLEN\DACTYLIS GLOMERATA POLLEN\FESTUCA PRATENSIS POLLEN\LOLIUM PERENNE POLLEN\PHLEUM PRATENSE POLLEN\POA PRATENSIS POLLEN
     Route: 058
  13. STERILE DILUENT FOR ALLERGENIC EXTRACT (ALBUMIN (HUMAN)\PHENOL) [Suspect]
     Active Substance: ALBUMIN HUMAN\PHENOL
     Route: 058
  14. POLLENS - WEEDS, KOCHIA SCOPARIA [Suspect]
     Active Substance: BASSIA SCOPARIA POLLEN
     Route: 058
  15. POLLENS - TREES, MULBERRY MIX [Suspect]
     Active Substance: MORUS ALBA POLLEN\MORUS RUBRA POLLEN
     Route: 058

REACTIONS (7)
  - Dermatitis allergic [Recovered/Resolved]
  - Cough [Recovered/Resolved]
  - Pruritus [Recovered/Resolved]
  - Flushing [Recovered/Resolved]
  - Presyncope [Recovered/Resolved]
  - Erythema [Recovered/Resolved]
  - Urticaria [Recovered/Resolved]

NARRATIVE: CASE EVENT DATE: 20160103
